FAERS Safety Report 10423353 (Version 1)
Quarter: 2014Q3

REPORT INFORMATION
  Report Type: Spontaneous
  Country: US (occurrence: US)
  Receive Date: 20140902
  Receipt Date: 20140902
  Transmission Date: 20150326
  Serious: No
  Sender: FDA-Public Use
  Company Number: US-009507513-1408USA014583

PATIENT
  Sex: Male

DRUGS (1)
  1. DULERA [Suspect]
     Active Substance: FORMOTEROL FUMARATE DIHYDRATE\MOMETASONE FUROATE
     Dosage: THERAPY REASON FOR USE: RESPIRATORY
     Route: 055

REACTIONS (4)
  - Drug dose omission [Unknown]
  - Chronic obstructive pulmonary disease [Recovering/Resolving]
  - Insomnia [Recovering/Resolving]
  - Product quality issue [Unknown]
